FAERS Safety Report 5210808-0 (Version None)
Quarter: 2006Q4

REPORT INFORMATION
  Report Type: 
  Country: None (occurrence: None)
  Receive Date: 20061101
  Receipt Date: 20060724
  Transmission Date: 20070319
  Serious: No
  Sender: FDA-Public Use
  Company Number: 2006PV018172

PATIENT
  Age: 63 Year
  Sex: Male
  Weight: 169.6453 kg

DRUGS (5)
  1. SYMLIN [Suspect]
     Indication: DIABETES MELLITUS NON-INSULIN-DEPENDENT
     Dosage: 60 MCG;TID;SC
     Route: 058
     Dates: start: 20060724
  2. NOVOLIN 70/30 [Concomitant]
  3. GLUCOPHAGE [Concomitant]
  4. ACTOS [Concomitant]
  5. BYETTA [Concomitant]

REACTIONS (4)
  - BALANCE DISORDER [None]
  - BLOOD GLUCOSE ABNORMAL [None]
  - DRY MOUTH [None]
  - MUSCULOSKELETAL STIFFNESS [None]
